FAERS Safety Report 9397692 (Version 1)
Quarter: 2013Q3

REPORT INFORMATION
  Report Type: Spontaneous
  Country: US (occurrence: None)
  Receive Date: 20130711
  Receipt Date: 20130711
  Transmission Date: 20140515
  Serious: Yes (Hospitalization)
  Sender: FDA-Public Use
  Company Number: None

PATIENT
  Age: 57 Year
  Sex: Male
  Weight: 68 kg

DRUGS (1)
  1. OPTIRAY 350 [Suspect]
     Indication: CATHETERISATION CARDIAC
     Route: 042
     Dates: start: 20130621, end: 20130621

REACTIONS (7)
  - Cough [None]
  - Hypertension [None]
  - Tachycardia [None]
  - Erythema [None]
  - Hyperhidrosis [None]
  - Nausea [None]
  - Vomiting [None]
